FAERS Safety Report 8102412-1 (Version None)
Quarter: 2012Q1

REPORT INFORMATION
  Report Type: 
  Country: None (occurrence: None)
  Receive Date: 20120131
  Receipt Date: 20120131
  Transmission Date: 20120608
  Serious: Yes (Hospitalization)
  Sender: FDA-Public Use
  Company Number: None

PATIENT
  Sex: Female
  Weight: 30.4 kg

DRUGS (4)
  1. CISPLATIN [Suspect]
     Dosage: 30 MG
     Dates: end: 20120110
  2. TAXOL [Suspect]
     Dosage: 60 MG
     Dates: end: 20120110
  3. DILAUDID [Concomitant]
  4. FENTANYL CITRATE [Concomitant]

REACTIONS (12)
  - FUNCTIONAL GASTROINTESTINAL DISORDER [None]
  - PLATELET COUNT DECREASED [None]
  - GASTROINTESTINAL STENOSIS [None]
  - DISCOMFORT [None]
  - HYPERPHAGIA [None]
  - NAUSEA [None]
  - FEBRILE NEUTROPENIA [None]
  - DIARRHOEA [None]
  - ABDOMINAL PAIN [None]
  - SUPERIOR MESENTERIC ARTERY SYNDROME [None]
  - HAEMATEMESIS [None]
  - KLEBSIELLA BACTERAEMIA [None]
